FAERS Safety Report 26070409 (Version 1)
Quarter: 2025Q4

REPORT INFORMATION
  Report Type: Spontaneous
  Country: US (occurrence: None)
  Receive Date: 20251120
  Receipt Date: 20251120
  Transmission Date: 20260117
  Serious: No
  Sender: FDA-CTU
  Company Number: None

PATIENT
  Age: 68 Year
  Sex: Female
  Weight: 54 kg

DRUGS (1)
  1. RECLAST [Suspect]
     Active Substance: ZOLEDRONIC ACID
     Indication: Osteoporosis
     Dates: start: 20250827, end: 20250827

REACTIONS (6)
  - Infusion related reaction [None]
  - Chills [None]
  - Back pain [None]
  - Arthralgia [None]
  - Headache [None]
  - Alopecia [None]

NARRATIVE: CASE EVENT DATE: 20250827
